FAERS Safety Report 8489074-9 (Version None)
Quarter: 2012Q3

REPORT INFORMATION
  Report Type: 
  Country: None (occurrence: None)
  Receive Date: 20120705
  Receipt Date: 20120627
  Transmission Date: 20120928
  Serious: Yes (Other)
  Sender: FDA-Public Use
  Company Number: GB-ROCHE-1082183

PATIENT
  Age: 40 Year
  Sex: Female

DRUGS (5)
  1. DIHYDROCODEINE BITARTRATE INJ [Concomitant]
     Route: 048
  2. METHOTREXATE [Concomitant]
     Indication: RHEUMATOID ARTHRITIS
     Route: 048
  3. ACETAMINOPHEN [Concomitant]
     Route: 048
  4. DICLOFENAC SODIUM [Concomitant]
     Indication: RHEUMATOID ARTHRITIS
     Route: 048
  5. ACTEMRA [Suspect]
     Indication: RHEUMATOID ARTHRITIS
     Route: 042
     Dates: start: 20111017, end: 20120127

REACTIONS (3)
  - MOUTH ULCERATION [None]
  - RECTAL HAEMORRHAGE [None]
  - BLOOD DISORDER [None]
